FAERS Safety Report 6912280-9 (Version None)
Quarter: 2010Q3

REPORT INFORMATION
  Report Type: 
  Country: None (occurrence: None)
  Receive Date: 20100806
  Receipt Date: 20080319
  Transmission Date: 20110219
  Serious: No
  Sender: FDA-Public Use
  Company Number: US-PFIZER INC-2008025649

PATIENT
  Age: 49 Year
  Sex: Female
  Weight: 49.09 kg

DRUGS (3)
  1. DETROL LA [Suspect]
     Indication: HYPERTONIC BLADDER
     Dates: start: 20080301, end: 20080301
  2. FISH OIL [Concomitant]
  3. CALCIUM W/MAGNESIUM [Concomitant]

REACTIONS (1)
  - BLADDER PAIN [None]
